FAERS Safety Report 5693630-0 (Version None)
Quarter: 2008Q2

REPORT INFORMATION
  Report Type: 
  Country: None (occurrence: None)
  Receive Date: 20080403
  Receipt Date: 20080331
  Transmission Date: 20081010
  Serious: Yes (Hospitalization)
  Sender: FDA-Public Use
  Company Number: DE-WYE-G01324008

PATIENT
  Sex: Female
  Weight: 84 kg

DRUGS (1)
  1. TREVILOR RETARD [Suspect]
     Dosage: 20 CAPSULES (OVERDOSE AMOUNT 1500MG)
     Route: 048
     Dates: start: 20080330, end: 20080330

REACTIONS (3)
  - DRUG ABUSE [None]
  - INTENTIONAL OVERDOSE [None]
  - TACHYCARDIA [None]
